FAERS Safety Report 10394589 (Version 6)
Quarter: 2015Q3

REPORT INFORMATION
  Report Type: Report from Study
  Country: IT (occurrence: IT)
  Receive Date: 20140820
  Receipt Date: 20150708
  Transmission Date: 20151125
  Serious: Yes (Other)
  Sender: FDA-Public Use
  Company Number: IT-ROCHE-1449904

PATIENT
  Age: 46 Year

DRUGS (6)
  1. DIPYRIDAMOLE. [Suspect]
     Active Substance: DIPYRIDAMOLE
     Indication: PRODUCT USED FOR UNKNOWN INDICATION
     Route: 065
  2. HEPARIN [Suspect]
     Active Substance: HEPARIN SODIUM
     Indication: ANTICOAGULANT THERAPY
     Dosage: PARTIAL THROMBOPLASTIN TIME RANGE BETWEEN 60 AND 80 S
     Route: 042
  3. ALTEPLASE [Suspect]
     Active Substance: ALTEPLASE
     Indication: THROMBOSIS IN DEVICE
     Dosage: 30-50 MG CONTINUOUSLY INFUSED INTO THE LEFT VENTRICLE THROUGH A PIGTAIL CATHETER AT A RATE OF 1 MG/M
     Route: 016
  4. ASPIRIN. [Suspect]
     Active Substance: ASPIRIN
     Indication: PRODUCT USED FOR UNKNOWN INDICATION
     Route: 065
  5. WARFARIN [Suspect]
     Active Substance: WARFARIN
     Indication: PRODUCT USED FOR UNKNOWN INDICATION
     Route: 065
  6. CLOPIDOGREL [Suspect]
     Active Substance: CLOPIDOGREL BISULFATE
     Indication: PRODUCT USED FOR UNKNOWN INDICATION
     Route: 065

REACTIONS (7)
  - Peripheral artery thrombosis [Unknown]
  - Cardiac failure [Unknown]
  - Atrial fibrillation [Unknown]
  - Product use issue [Unknown]
  - Thrombosis in device [Unknown]
  - Pneumonia [Unknown]
  - Haematoma [Unknown]
